FAERS Safety Report 6738305-1 (Version None)
Quarter: 2010Q2

REPORT INFORMATION
  Report Type: 
  Country: None (occurrence: None)
  Receive Date: 20100524
  Receipt Date: 20100518
  Transmission Date: 20101027
  Serious: Yes (Hospitalization)
  Sender: FDA-Public Use
  Company Number: CA-MERCK-1005USA02633

PATIENT
  Age: 73 Year
  Sex: Female
  Weight: 88 kg

DRUGS (5)
  1. HYZAAR [Suspect]
     Route: 048
  2. FOSAMAX [Concomitant]
     Route: 048
  3. LORAZEPAM [Concomitant]
     Route: 048
  4. VITAMIN D (UNSPECIFIED) [Concomitant]
     Route: 048
  5. ASPIRIN [Concomitant]
     Route: 048

REACTIONS (6)
  - DIARRHOEA [None]
  - HYPOTENSION [None]
  - NAUSEA [None]
  - PIGMENTATION DISORDER [None]
  - RESPIRATORY DISTRESS [None]
  - VOMITING [None]
